FAERS Safety Report 15015140 (Version 1)
Quarter: 2018Q2

REPORT INFORMATION
  Report Type: Spontaneous
  Country: ES (occurrence: ES)
  Receive Date: 20180615
  Receipt Date: 20180615
  Transmission Date: 20180711
  Serious: Yes (Hospitalization, Other)
  Sender: FDA-Public Use
  Company Number: ES-TEVA-2018-ES-905907

PATIENT
  Age: 82 Year
  Sex: Male
  Weight: 74 kg

DRUGS (15)
  1. ZYTIGA [Suspect]
     Active Substance: ABIRATERONE ACETATE
     Dosage: 500 MILLIGRAM DAILY;
     Route: 048
  2. GOSERELIN [Suspect]
     Active Substance: GOSERELIN
     Dosage: 11 MILLIGRAM DAILY;
     Route: 058
     Dates: start: 200511
  3. TRANKIMAZIN [Concomitant]
     Active Substance: ALPRAZOLAM
     Indication: ANXIETY
     Dosage: DOSAGE FORM: UNSPECIFIED
     Route: 065
     Dates: start: 20150501
  4. TAMSULOSIN [Concomitant]
     Active Substance: TAMSULOSIN
     Indication: PROSTATE CANCER
     Dosage: DOSAGE FORM: UNSPECIFIED
     Route: 065
     Dates: start: 20150401
  5. DENOSUMAB [Suspect]
     Active Substance: DENOSUMAB
     Indication: OSTEOPOROSIS
     Dosage: 120 MG, QMO
     Route: 058
     Dates: start: 20170101, end: 2017
  6. LORMETAZEPAM [Concomitant]
     Active Substance: LORMETAZEPAM
     Indication: INSOMNIA
     Dosage: DOSAGE FORM: UNSPECIFIED
     Route: 065
     Dates: start: 20050101
  7. ENZALUTAMIDE [Suspect]
     Active Substance: ENZALUTAMIDE
     Indication: PROSTATE CANCER
     Dosage: 4 DOSAGE FORMS DAILY;
     Route: 048
     Dates: start: 20151123, end: 20161213
  8. DENOSUMAB [Suspect]
     Active Substance: DENOSUMAB
     Route: 058
     Dates: start: 20180228
  9. GOSERELIN [Suspect]
     Active Substance: GOSERELIN
     Indication: PROSTATE CANCER
     Dosage: 10.8 MILLIGRAM DAILY; REDUCED DOSE
     Route: 058
     Dates: start: 20151101
  10. PREDNISONE. [Suspect]
     Active Substance: PREDNISONE
     Indication: PROSTATE CANCER
     Dosage: 5 MILLIGRAM DAILY; 10 MG, QD
     Route: 048
     Dates: start: 20161228
  11. ENZALUTAMIDE [Suspect]
     Active Substance: ENZALUTAMIDE
     Route: 048
  12. ENALAPRIL [Concomitant]
     Active Substance: ENALAPRIL
     Indication: HYPERTENSION
     Dosage: DOSAGE FORM: UNSPECIFIED
     Route: 065
     Dates: start: 20151222
  13. PREDNISONE. [Suspect]
     Active Substance: PREDNISONE
     Dosage: 10 MILLIGRAM DAILY;
     Route: 048
  14. ZYTIGA [Suspect]
     Active Substance: ABIRATERONE ACETATE
     Indication: PROSTATE CANCER
     Dosage: 1000 MILLIGRAM DAILY;
     Route: 048
     Dates: start: 20161228
  15. OMEPRAZOLE. [Concomitant]
     Active Substance: OMEPRAZOLE
     Indication: DYSPEPSIA
     Dosage: DOSAGE FORM: UNSPECIFIED
     Route: 065
     Dates: start: 20050101

REACTIONS (6)
  - Metastases to spine [Unknown]
  - Metastases to bone [Unknown]
  - Off label use [Unknown]
  - Muscular weakness [Unknown]
  - Urinary tract infection [Recovered/Resolved]
  - Incorrect dose administered [Unknown]

NARRATIVE: CASE EVENT DATE: 20171004
